FAERS Safety Report 7402518-6 (Version None)
Quarter: 2011Q2

REPORT INFORMATION
  Report Type: 
  Country: None (occurrence: None)
  Receive Date: 20110408
  Receipt Date: 20110406
  Transmission Date: 20111010
  Serious: Yes (Death, Other)
  Sender: FDA-Public Use
  Company Number: PHHY2011CH23879

PATIENT
  Age: 81 Year
  Sex: Male

DRUGS (16)
  1. VENLAFAXINE HCL [Suspect]
     Indication: PAIN
     Dosage: 37.5 MG, QD
  2. TRAMADOL [Concomitant]
     Indication: PAIN
     Dates: start: 20100701
  3. FOSAMAX [Concomitant]
     Dosage: 70 MG, QD
     Route: 048
  4. TRILEPTAL [Suspect]
     Dosage: 300 MG THREE TIMES DAILY AND 150 MG ONCE DAILY
     Dates: end: 20110207
  5. ARIXTRA [Concomitant]
     Dosage: 2.5 MG, QD
     Dates: start: 20110131, end: 20110222
  6. TRILEPTAL [Suspect]
     Dosage: 300 MG THREE TIMES DAILY AND 150 MG ONE TIME DAILY
     Dates: start: 20110209, end: 20110209
  7. ASPIRIN [Concomitant]
     Dosage: 100 MG, QD
  8. IMIPENEM [Concomitant]
     Dosage: 500 MG, QID
     Route: 042
     Dates: start: 20110221, end: 20110222
  9. LYRICA [Suspect]
     Indication: PAIN
     Dosage: 150 MG, BID
  10. NEXIUM [Concomitant]
     Dosage: 20 MG, QD
     Route: 048
  11. DAFALGAN [Concomitant]
     Dosage: 1 G, TID
     Route: 048
  12. IRBESARTAN [Concomitant]
     Dosage: 150 MG, QD
     Route: 048
  13. TRILEPTAL [Suspect]
     Indication: POST HERPETIC NEURALGIA
     Dosage: 150 MG, QID
  14. TRILEPTAL [Suspect]
     Dosage: 150 MG, TID
     Dates: start: 20110208, end: 20110208
  15. TRILEPTAL [Suspect]
     Dosage: 300 MG TWICE DAILY AND 150 MG TWICE DAILY
     Dates: start: 20110210, end: 20110222
  16. CALCIMAGON-D3 [Concomitant]
     Dosage: 1 DF, BID
     Route: 048

REACTIONS (6)
  - TACHYPNOEA [None]
  - OXYGEN SATURATION DECREASED [None]
  - PYREXIA [None]
  - RENAL FAILURE ACUTE [None]
  - CARDIAC ARREST [None]
  - DRUG LEVEL INCREASED [None]
